FAERS Safety Report 10716208 (Version 1)
Quarter: 2015Q1

REPORT INFORMATION
  Report Type: Report from Study
  Country: DE (occurrence: DE)
  Receive Date: 20150116
  Receipt Date: 20150116
  Transmission Date: 20150721
  Serious: Yes (Death, Other)
  Sender: FDA-Public Use
  Company Number: DE-CELGENE-DEU-2014125802

PATIENT
  Age: 21 Year
  Sex: Male

DRUGS (23)
  1. VINORELBINE [Concomitant]
     Active Substance: VINORELBINE\VINORELBINE TARTRATE
     Indication: HODGKIN^S DISEASE
     Route: 065
     Dates: start: 200710
  2. VINORELBINE [Concomitant]
     Active Substance: VINORELBINE\VINORELBINE TARTRATE
     Route: 065
     Dates: start: 200903
  3. VINORELBINE [Concomitant]
     Active Substance: VINORELBINE\VINORELBINE TARTRATE
     Dosage: 50%
     Route: 065
     Dates: start: 20090417, end: 20090508
  4. VINORELBINE [Concomitant]
     Active Substance: VINORELBINE\VINORELBINE TARTRATE
     Route: 065
     Dates: start: 200808, end: 200810
  5. VINORELBINE [Concomitant]
     Active Substance: VINORELBINE\VINORELBINE TARTRATE
     Dosage: REDUCED TO 75%
     Route: 065
     Dates: start: 200811
  6. VINORELBINE [Concomitant]
     Active Substance: VINORELBINE\VINORELBINE TARTRATE
     Route: 065
     Dates: start: 20090206
  7. VINORELBINE [Concomitant]
     Active Substance: VINORELBINE\VINORELBINE TARTRATE
     Dosage: 50%
     Route: 065
     Dates: start: 20090514
  8. GEMCITABINE [Concomitant]
     Active Substance: GEMCITABINE\GEMCITABINE HYDROCHLORIDE
     Route: 065
     Dates: start: 200808, end: 200810
  9. REVLIMID [Suspect]
     Active Substance: LENALIDOMIDE
     Route: 048
     Dates: start: 20090417, end: 20090508
  10. VINORELBINE [Concomitant]
     Active Substance: VINORELBINE\VINORELBINE TARTRATE
     Route: 065
     Dates: start: 200812
  11. L-THYROXINE [Concomitant]
     Active Substance: LEVOTHYROXINE
     Indication: HYPOTHYROIDISM
     Route: 065
  12. GEMCITABINE [Concomitant]
     Active Substance: GEMCITABINE\GEMCITABINE HYDROCHLORIDE
     Indication: HODGKIN^S DISEASE
     Route: 065
     Dates: start: 200710
  13. GEMCITABINE [Concomitant]
     Active Substance: GEMCITABINE\GEMCITABINE HYDROCHLORIDE
     Dosage: 5 MILLIGRAM
     Route: 065
     Dates: start: 20090121
  14. REVLIMID [Suspect]
     Active Substance: LENALIDOMIDE
     Indication: HODGKIN^S DISEASE
     Route: 048
     Dates: start: 20090211, end: 20090303
  15. REVLIMID [Suspect]
     Active Substance: LENALIDOMIDE
     Route: 048
     Dates: end: 20090513
  16. GEMCITABINE [Concomitant]
     Active Substance: GEMCITABINE\GEMCITABINE HYDROCHLORIDE
     Route: 065
     Dates: start: 200812
  17. GEMCITABINE [Concomitant]
     Active Substance: GEMCITABINE\GEMCITABINE HYDROCHLORIDE
     Route: 065
     Dates: start: 20090206
  18. GEMCITABINE [Concomitant]
     Active Substance: GEMCITABINE\GEMCITABINE HYDROCHLORIDE
     Route: 065
     Dates: start: 200903
  19. GEMCITABINE [Concomitant]
     Active Substance: GEMCITABINE\GEMCITABINE HYDROCHLORIDE
     Dosage: REDUCED TO 75%
     Route: 065
     Dates: start: 200811
  20. VINORELBINE [Concomitant]
     Active Substance: VINORELBINE\VINORELBINE TARTRATE
     Route: 065
     Dates: start: 20090121
  21. GEMCITABINE [Concomitant]
     Active Substance: GEMCITABINE\GEMCITABINE HYDROCHLORIDE
     Dosage: 50%
     Route: 065
     Dates: start: 20090417, end: 20090508
  22. GEMCITABINE [Concomitant]
     Active Substance: GEMCITABINE\GEMCITABINE HYDROCHLORIDE
     Dosage: 50%
     Route: 065
     Dates: start: 20090514
  23. CERTICAN [Concomitant]
     Active Substance: EVEROLIMUS
     Indication: PRODUCT USED FOR UNKNOWN INDICATION
     Route: 065
     Dates: start: 200905, end: 200908

REACTIONS (10)
  - Renal failure [Unknown]
  - Pleural fistula [Unknown]
  - Pleural effusion [Unknown]
  - Death [Fatal]
  - Cardiac disorder [Unknown]
  - Lymphadenopathy [Unknown]
  - Fracture [Unknown]
  - Pruritus [Unknown]
  - Bone marrow toxicity [Unknown]
  - Hodgkin^s disease [Unknown]

NARRATIVE: CASE EVENT DATE: 2009
